FAERS Safety Report 22021544 (Version 1)
Quarter: 2023Q1

REPORT INFORMATION
  Report Type: Spontaneous
  Country: US (occurrence: None)
  Receive Date: 20230219
  Receipt Date: 20230219
  Transmission Date: 20230417
  Serious: Yes (Hospitalization)
  Sender: FDA-Public Use
  Company Number: None

PATIENT
  Age: 48 Year
  Sex: Female
  Weight: 77 kg

DRUGS (1)
  1. ABEMACICLIB [Suspect]
     Active Substance: ABEMACICLIB
     Dosage: FREQUENCY : TWICE A DAY;?
     Route: 048
     Dates: start: 20230107, end: 20230217

REACTIONS (2)
  - Dyspnoea [None]
  - Pulmonary fibrosis [None]

NARRATIVE: CASE EVENT DATE: 20230217
